FAERS Safety Report 12872671 (Version 1)
Quarter: 2016Q4

REPORT INFORMATION
  Report Type: Spontaneous
  Country: GB (occurrence: GB)
  Receive Date: 20161021
  Receipt Date: 20161021
  Transmission Date: 20170207
  Serious: Yes (Hospitalization)
  Sender: FDA-Public Use
  Company Number: US-BRAINTREE LABORATORIES-160679-1

PATIENT
  Age: 46 Year
  Sex: Female

DRUGS (1)
  1. EZICLEN [Suspect]
     Active Substance: MAGNESIUM SULFATE\POTASSIUM SULFATE\SODIUM SULFATE
     Indication: OFF LABEL USE
     Dosage: 1 X 6 OZ BOTTLE
     Route: 048
     Dates: start: 20160804, end: 20160804

REACTIONS (8)
  - Headache [None]
  - Migraine [None]
  - Abdominal distension [None]
  - Nausea [None]
  - Aversion [None]
  - Dizziness [None]
  - Vomiting [None]
  - Malaise [None]

NARRATIVE: CASE EVENT DATE: 20160804
